FAERS Safety Report 9982943 (Version 1)
Quarter: 2014Q1

REPORT INFORMATION
  Report Type: Report from Study
  Country: US (occurrence: US)
  Receive Date: 20140307
  Receipt Date: 20140307
  Transmission Date: 20141002
  Serious: No
  Sender: FDA-Public Use
  Company Number: US-ABBVIE-13P-163-1181265-00

PATIENT
  Age: 26 Year
  Sex: Male

DRUGS (6)
  1. HUMIRA [Suspect]
     Indication: COLITIS ULCERATIVE
     Dates: start: 201310, end: 201312
  2. HUMIRA [Suspect]
     Dates: start: 20131211
  3. UCERIS [Concomitant]
     Indication: COLITIS ULCERATIVE
  4. PENTASA [Concomitant]
     Indication: COLITIS ULCERATIVE
     Dosage: PILLS
  5. HYDROCODONE [Concomitant]
     Indication: ABDOMINAL PAIN
  6. LIBRAX [Concomitant]
     Indication: ABDOMINAL PAIN

REACTIONS (1)
  - Colitis ulcerative [Not Recovered/Not Resolved]
